FAERS Safety Report 15633058 (Version 1)
Quarter: 2018Q4

REPORT INFORMATION
  Report Type: Spontaneous
  Country: BR (occurrence: BR)
  Receive Date: 20181119
  Receipt Date: 20181119
  Transmission Date: 20190205
  Serious: Yes (Other)
  Sender: FDA-Public Use
  Company Number: BR-PFIZER INC-2018349855

PATIENT
  Age: 62 Year
  Sex: Male

DRUGS (3)
  1. ATENOLOL. [Concomitant]
     Active Substance: ATENOLOL
     Dosage: UNK
  2. ENALAPRIL [Concomitant]
     Active Substance: ENALAPRIL
     Dosage: UNK
  3. LORAX [Suspect]
     Active Substance: LORAZEPAM
     Indication: STRESS
     Dosage: 4 MG, DAILY (2 TABLETS OF 2 MG DAILY)
     Dates: start: 2000

REACTIONS (4)
  - Benign prostatic hyperplasia [Unknown]
  - Erectile dysfunction [Unknown]
  - Drug dependence [Not Recovered/Not Resolved]
  - Product use in unapproved indication [Unknown]

NARRATIVE: CASE EVENT DATE: 2000
